FAERS Safety Report 23269441 (Version 1)
Quarter: 2023Q4

REPORT INFORMATION
  Report Type: Other
  Country: RU (occurrence: None)
  Receive Date: 20231207
  Receipt Date: 20231207
  Transmission Date: 20240109
  Serious: Yes (Death)
  Sender: FDA-Public Use
  Company Number: RU-ROCHE-3467042

PATIENT
  Age: 46 Year
  Sex: Male

DRUGS (14)
  1. BEVACIZUMAB [Suspect]
     Active Substance: BEVACIZUMAB
     Indication: Colorectal cancer metastatic
     Dosage: 12 CYCLES, FIRST-LINE THERAPY
     Route: 065
     Dates: start: 202003, end: 202010
  2. BEVACIZUMAB [Suspect]
     Active Substance: BEVACIZUMAB
     Dosage: 15 CYCLES, 2ND-LINE THERAPY
     Route: 065
     Dates: start: 202011, end: 202106
  3. BEVACIZUMAB [Suspect]
     Active Substance: BEVACIZUMAB
     Dosage: 15 CYCLES, FIFTH-LINE THERAPY
     Route: 065
     Dates: start: 202201, end: 202205
  4. LEUCOVORIN [Suspect]
     Active Substance: LEUCOVORIN\LEUCOVORIN CALCIUM
     Indication: Colorectal cancer metastatic
     Dosage: 12 CYCLES, FIRST-LINE THERAPY
     Route: 065
     Dates: start: 202003, end: 202010
  5. LEUCOVORIN [Suspect]
     Active Substance: LEUCOVORIN\LEUCOVORIN CALCIUM
     Dosage: 15 CYCLES, 2ND-LINE THERAPY
     Route: 065
     Dates: start: 202011, end: 202106
  6. LEUCOVORIN [Suspect]
     Active Substance: LEUCOVORIN\LEUCOVORIN CALCIUM
     Dosage: 15 CYCLES, FIFTH-LINE THERAPY
     Route: 065
     Dates: start: 202201, end: 202205
  7. FLUOROURACIL [Suspect]
     Active Substance: FLUOROURACIL
     Indication: Colorectal cancer metastatic
     Dosage: 12 CYCLES, FIRST-LINE THERAPY
     Route: 065
     Dates: start: 202003, end: 202010
  8. FLUOROURACIL [Suspect]
     Active Substance: FLUOROURACIL
     Dosage: 15 CYCLES, 2ND-LINE THERAPY
     Route: 065
     Dates: start: 202011, end: 202106
  9. FLUOROURACIL [Suspect]
     Active Substance: FLUOROURACIL
     Dosage: 15 CYCLES, FIFTH-LINE THERAPY
     Route: 065
     Dates: start: 202201, end: 202205
  10. OXALIPLATIN [Suspect]
     Active Substance: OXALIPLATIN
     Indication: Colorectal cancer metastatic
     Dosage: 12 CYCLES, FIRST-LINE THERAPY
     Route: 065
     Dates: start: 202003, end: 202010
  11. IRINOTECAN [Suspect]
     Active Substance: IRINOTECAN
     Indication: Colorectal cancer metastatic
     Dosage: 15 CYCLES, 2ND-LINE THERAPY
     Route: 065
     Dates: start: 202011, end: 202106
  12. IRINOTECAN [Suspect]
     Active Substance: IRINOTECAN
     Dosage: 15 CYCLES, FIFTH-LINE THERAPY
     Route: 065
     Dates: start: 202201, end: 202205
  13. TIPIRACIL HYDROCHLORIDE\TRIFLURIDINE [Concomitant]
     Active Substance: TIPIRACIL HYDROCHLORIDE\TRIFLURIDINE
     Dates: start: 202107, end: 202112
  14. TALAZOPARIB [Concomitant]
     Active Substance: TALAZOPARIB
     Dates: start: 202112, end: 202201

REACTIONS (1)
  - Disease progression [Fatal]

NARRATIVE: CASE EVENT DATE: 20201001
